FAERS Safety Report 8545966-3 (Version None)
Quarter: 2012Q3

REPORT INFORMATION
  Report Type: 
  Country: None (occurrence: None)
  Receive Date: 20120727
  Receipt Date: 20111129
  Transmission Date: 20120928
  Serious: No
  Sender: FDA-Public Use
  Company Number: US-ASTRAZENECA-2011SE72180

PATIENT
  Age: 34 Year
  Sex: Male
  Weight: 68 kg

DRUGS (5)
  1. SEROQUEL [Suspect]
     Indication: DEPRESSION
     Route: 048
  2. BUSPAR [Concomitant]
     Indication: DEPRESSION
  3. SEROQUEL [Suspect]
     Route: 048
     Dates: start: 20111101
  4. SEROQUEL [Suspect]
     Indication: ANXIETY
     Route: 048
  5. SEROQUEL [Suspect]
     Route: 048
     Dates: start: 20111101

REACTIONS (5)
  - FATIGUE [None]
  - OFF LABEL USE [None]
  - FEELING ABNORMAL [None]
  - AFFECT LABILITY [None]
  - DRUG INEFFECTIVE FOR UNAPPROVED INDICATION [None]
